FAERS Safety Report 9341080 (Version 1)
Quarter: 2013Q2

REPORT INFORMATION
  Report Type: Spontaneous
  Country: US (occurrence: US)
  Receive Date: 20130610
  Receipt Date: 20130610
  Transmission Date: 20140414
  Serious: No
  Sender: FDA-Public Use
  Company Number: US-ASTRAZENECA-2013SE37970

PATIENT
  Age: 21 Year
  Sex: Male
  Weight: 74.8 kg

DRUGS (6)
  1. SEROQUEL [Suspect]
     Indication: BIPOLAR DISORDER
     Route: 048
     Dates: start: 2008
  2. SEROQUEL [Suspect]
     Indication: MANIA
     Route: 048
     Dates: start: 2008
  3. SEROQUEL [Suspect]
     Indication: OBSESSIVE-COMPULSIVE DISORDER
     Route: 048
     Dates: start: 2008
  4. SEROQUEL [Suspect]
     Indication: BIPOLAR DISORDER
     Route: 048
     Dates: start: 2010
  5. SEROQUEL [Suspect]
     Indication: MANIA
     Route: 048
     Dates: start: 2010
  6. SEROQUEL [Suspect]
     Indication: OBSESSIVE-COMPULSIVE DISORDER
     Route: 048
     Dates: start: 2010

REACTIONS (3)
  - Obsessive-compulsive disorder [Unknown]
  - Productive cough [Unknown]
  - Drug ineffective [Unknown]
